FAERS Safety Report 8881543 (Version 1)
Quarter: 2012Q4

REPORT INFORMATION
  Report Type: 
  Country: MY (occurrence: MY)
  Receive Date: 20121101
  Receipt Date: 20121101
  Transmission Date: 20130627
  Serious: Yes (Other)
  Sender: FDA-Public Use
  Company Number: MY-BAYER-2012-113654

PATIENT
  Age: 62 Year
  Sex: Female

DRUGS (2)
  1. AVELOX [Suspect]
     Indication: PNEUMONIA
     Dosage: 400 mg, QD
     Route: 048
  2. WARFARIN [Interacting]
     Indication: ATRIAL FIBRILLATION
     Dosage: 1.5 mg, QD

REACTIONS (1)
  - International normalised ratio increased [Recovered/Resolved]
